FAERS Safety Report 17571401 (Version 1)
Quarter: 2020Q1

REPORT INFORMATION
  Report Type: Spontaneous
  Country: US (occurrence: US)
  Receive Date: 20200317
  Receipt Date: 20200317
  Transmission Date: 20200409
  Serious: Yes (Hospitalization)
  Sender: FDA-Public Use
  Company Number: None

PATIENT
  Age: 4 Year
  Sex: Male
  Weight: 16.35 kg

DRUGS (1)
  1. METHOTREXATE. [Suspect]
     Active Substance: METHOTREXATE
     Dates: end: 20190613

REACTIONS (9)
  - Hypophagia [None]
  - Decreased activity [None]
  - Neutropenia [None]
  - Therapy cessation [None]
  - Pyrexia [None]
  - Vomiting [None]
  - Diarrhoea [None]
  - Thrombocytopenia [None]
  - Sepsis [None]

NARRATIVE: CASE EVENT DATE: 20171211
